FAERS Safety Report 25342760 (Version 2)
Quarter: 2025Q2

REPORT INFORMATION
  Report Type: Spontaneous
  Country: BR (occurrence: BR)
  Receive Date: 20250521
  Receipt Date: 20250620
  Transmission Date: 20250717
  Serious: Yes (Other)
  Sender: JOHNSON AND JOHNSON
  Company Number: BR-JNJFOC-20250520896

PATIENT
  Sex: Male

DRUGS (1)
  1. TALVEY [Suspect]
     Active Substance: TALQUETAMAB-TGVS
     Indication: Product used for unknown indication
     Route: 065
     Dates: start: 202501

REACTIONS (6)
  - Ascites [Unknown]
  - Tuberculosis [Unknown]
  - Peritonitis [Unknown]
  - Pleural disorder [Recovered/Resolved]
  - Infection [Unknown]
  - Inflammation [Unknown]
